FAERS Safety Report 14894714 (Version 6)
Quarter: 2018Q3

REPORT INFORMATION
  Report Type: Spontaneous
  Country: HU (occurrence: HU)
  Receive Date: 20180515
  Receipt Date: 20180726
  Transmission Date: 20181010
  Serious: Yes (Hospitalization, Other)
  Sender: FDA-Public Use
  Company Number: HU-BRISTOL-MYERS SQUIBB COMPANY-BMS-2018-043321

PATIENT
  Age: 85 Year
  Sex: Male

DRUGS (1)
  1. ELIQUIS [Suspect]
     Active Substance: APIXABAN
     Indication: CEREBROVASCULAR ACCIDENT PROPHYLAXIS
     Dosage: 2.5 MG, BID
     Route: 048
     Dates: start: 201601

REACTIONS (9)
  - Myelodysplastic syndrome [Unknown]
  - Pancytopenia [Unknown]
  - Anaemia [Recovering/Resolving]
  - Vascular encephalopathy [Unknown]
  - Arteriosclerosis [Unknown]
  - Chronic kidney disease [Recovering/Resolving]
  - Chronic gastritis [Unknown]
  - Endocarditis [Unknown]
  - Brain stem ischaemia [Unknown]

NARRATIVE: CASE EVENT DATE: 2016
